FAERS Safety Report 5486364-9 (Version None)
Quarter: 2007Q4

REPORT INFORMATION
  Report Type: 
  Country: None (occurrence: None)
  Receive Date: 20071016
  Receipt Date: 20071002
  Transmission Date: 20080405
  Serious: Yes (Hospitalization)
  Sender: FDA-Public Use
  Company Number: JP-ELI_LILLY_AND_COMPANY-JP200709003413

PATIENT
  Sex: Male
  Weight: 55.68 kg

DRUGS (4)
  1. GEMZAR [Suspect]
     Indication: LUNG ADENOCARCINOMA RECURRENT
     Dosage: 1000 MG/M2, OTHER
     Route: 042
     Dates: start: 20070821, end: 20070821
  2. TAXOTERE [Concomitant]
     Indication: LUNG ADENOCARCINOMA RECURRENT
     Dosage: 30 MG/M2, OTHER
     Route: 042
     Dates: start: 20070821, end: 20070821
  3. UFT [Concomitant]
     Indication: LUNG ADENOCARCINOMA RECURRENT
     Dosage: UNK, OTHER
     Route: 048
     Dates: start: 20051206, end: 20070725
  4. KYTRIL /01178101/ [Concomitant]
     Indication: PROPHYLAXIS
     Dosage: 3 MG, UNK
     Route: 042
     Dates: start: 20070821, end: 20070821

REACTIONS (2)
  - ANAEMIA HAEMOLYTIC AUTOIMMUNE [None]
  - MALAISE [None]
